FAERS Safety Report 25483689 (Version 1)
Quarter: 2025Q2

REPORT INFORMATION
  Report Type: Spontaneous
  Country: AR (occurrence: AR)
  Receive Date: 20250626
  Receipt Date: 20250626
  Transmission Date: 20250717
  Serious: Yes (Hospitalization, Other)
  Sender: SANDOZ
  Company Number: AR-002147023-NVSC2025AR083619

PATIENT
  Sex: Female

DRUGS (4)
  1. ILARIS [Suspect]
     Active Substance: CANAKINUMAB
     Indication: Juvenile idiopathic arthritis
     Dosage: UNK QMO (150 MG/ML)
     Route: 058
     Dates: start: 20241124
  2. ILARIS [Suspect]
     Active Substance: CANAKINUMAB
     Route: 065
  3. METHOTREXATE [Suspect]
     Active Substance: METHOTREXATE
     Indication: Product used for unknown indication
     Route: 065
     Dates: start: 2024
  4. Axiomat [Concomitant]
     Indication: Product used for unknown indication
     Dosage: 20 MG (EVERY DAY)
     Route: 065

REACTIONS (27)
  - Cellulitis [Not Recovered/Not Resolved]
  - Rash macular [Unknown]
  - Pityriasis rosea [Unknown]
  - Epidermal necrosis [Unknown]
  - Abscess limb [Unknown]
  - Skin burning sensation [Recovered/Resolved]
  - Pustule [Unknown]
  - Subcorneal pustular dermatosis [Not Recovered/Not Resolved]
  - Pruritus [Not Recovered/Not Resolved]
  - Hypersensitivity [Unknown]
  - Pyrexia [Recovering/Resolving]
  - Skin exfoliation [Not Recovered/Not Resolved]
  - Acanthosis [Unknown]
  - Eczema [Unknown]
  - Superficial inflammatory dermatosis [Unknown]
  - Parakeratosis [Unknown]
  - Seborrhoeic dermatitis [Unknown]
  - Hypochromic anaemia [Unknown]
  - Infection [Recovered/Resolved]
  - Wound [Unknown]
  - Gastrointestinal disorder [Unknown]
  - Condition aggravated [Unknown]
  - C-reactive protein increased [Unknown]
  - Hypochromic anaemia [Unknown]
  - Haemoglobin decreased [Unknown]
  - Oedema [Unknown]
  - Off label use [Unknown]
